FAERS Safety Report 8074326-7 (Version None)
Quarter: 2012Q1

REPORT INFORMATION
  Report Type: 
  Country: None (occurrence: None)
  Receive Date: 20120126
  Receipt Date: 20120116
  Transmission Date: 20120608
  Serious: Yes (Other)
  Sender: FDA-Public Use
  Company Number: JP-NOVOPROD-340421

PATIENT
  Age: 59 Year
  Sex: Male
  Weight: 81 kg

DRUGS (8)
  1. ONEALFA [Concomitant]
     Indication: HYPOPITUITARISM
     Dosage: 0.5 A?G, QD
     Route: 048
     Dates: start: 20110501
  2. NORDITROPIN FLEXPRO [Suspect]
     Indication: GROWTH HORMONE DEFICIENCY
     Dosage: 0.5 MG, QD
     Route: 058
     Dates: start: 20110921
  3. CORTRIL                            /00028601/ [Concomitant]
     Indication: HYPOPITUITARISM
     Dosage: 10 MG, QD
     Route: 048
     Dates: start: 20110413
  4. SELBEX [Concomitant]
     Indication: HYPOPITUITARISM
     Dosage: 100 MG, QD
     Route: 048
     Dates: start: 20110501
  5. VALPROATE SODIUM [Concomitant]
     Indication: EPILEPSY
     Dosage: 800 MG, QD
     Route: 048
  6. VALPROATE SODIUM [Concomitant]
     Dosage: 1.2 G, QD
     Route: 048
  7. LEVETIRACETAM [Concomitant]
     Dosage: 1 G, UNK
  8. LEVOTHYROXINE SODIUM [Concomitant]
     Indication: HYPOPITUITARISM
     Dosage: 75 A?G, QD
     Route: 048
     Dates: start: 20110512

REACTIONS (1)
  - EPILEPSY [None]
